FAERS Safety Report 18981742 (Version 1)
Quarter: 2021Q1

REPORT INFORMATION
  Report Type: Spontaneous
  Country: US (occurrence: US)
  Receive Date: 20210308
  Receipt Date: 20210308
  Transmission Date: 20210420
  Serious: No
  Sender: FDA-Public Use
  Company Number: US-MYLANLABS-2021M1012488

PATIENT
  Sex: Female
  Weight: 68 kg

DRUGS (2)
  1. SERTRALINE [Concomitant]
     Active Substance: SERTRALINE HYDROCHLORIDE
     Dosage: UNK
  2. XULANE [Suspect]
     Active Substance: ETHINYL ESTRADIOL\NORELGESTROMIN
     Indication: CONTRACEPTION
     Dosage: 150/35 MCG/DAY (1 PATCH A WEEK FOR 3 WEEKS)
     Route: 062

REACTIONS (2)
  - Application site rash [Recovered/Resolved]
  - Product adhesion issue [Not Recovered/Not Resolved]
